FAERS Safety Report 7153543-4 (Version None)
Quarter: 2010Q4

REPORT INFORMATION
  Report Type: 
  Country: None (occurrence: None)
  Receive Date: 20101209
  Receipt Date: 20101209
  Transmission Date: 20110411
  Serious: Yes (Hospitalization)
  Sender: FDA-Public Use
  Company Number: None

PATIENT
  Sex: Male
  Weight: 90.7194 kg

DRUGS (1)
  1. THERACYS [Suspect]

REACTIONS (4)
  - BOVINE TUBERCULOSIS [None]
  - DYSPNOEA [None]
  - IATROGENIC INJURY [None]
  - INJURY ASSOCIATED WITH DEVICE [None]
